FAERS Safety Report 11164851 (Version 1)
Quarter: 2015Q2

REPORT INFORMATION
  Report Type: Report from Study
  Country: BR (occurrence: BR)
  Receive Date: 20150604
  Receipt Date: 20150604
  Transmission Date: 20150821
  Serious: Yes (Other)
  Sender: FDA-Public Use
  Company Number: BR-BIOGENIDEC-2015BI074631

PATIENT
  Age: 40 Year
  Sex: Female

DRUGS (1)
  1. AVONEX [Suspect]
     Active Substance: INTERFERON BETA-1A
     Indication: MULTIPLE SCLEROSIS
     Route: 030
     Dates: start: 20130801, end: 201405

REACTIONS (4)
  - Intentional product use issue [Unknown]
  - General symptom [Unknown]
  - Bone marrow disorder [Unknown]
  - Gastric disorder [Unknown]

NARRATIVE: CASE EVENT DATE: 20130801
